FAERS Safety Report 9969929 (Version 1)
Quarter: 2014Q1

REPORT INFORMATION
  Report Type: Spontaneous
  Country: US (occurrence: None)
  Receive Date: 20140131
  Receipt Date: 20140131
  Transmission Date: 20141002
  Serious: Yes (Other)
  Sender: FDA-Public Use
  Company Number: 078050

PATIENT
  Sex: Female
  Weight: 143.8 kg

DRUGS (1)
  1. KEPPRA [Suspect]
     Indication: CONVULSION
     Dates: start: 201208

REACTIONS (3)
  - Influenza [None]
  - Grand mal convulsion [None]
  - Poor quality sleep [None]
